FAERS Safety Report 8121331-8 (Version None)
Quarter: 2012Q1

REPORT INFORMATION
  Report Type: 
  Country: None (occurrence: None)
  Receive Date: 20120208
  Receipt Date: 20120203
  Transmission Date: 20120608
  Serious: Yes (Other)
  Sender: FDA-Public Use
  Company Number: ES-ASTELLAS-2012US001561

PATIENT
  Age: 71 Year
  Sex: Female

DRUGS (5)
  1. ENALAPRIL MALEATE [Concomitant]
     Indication: PRODUCT USED FOR UNKNOWN INDICATION
     Dosage: UNK
     Route: 065
  2. ALPRAZOLAM [Concomitant]
     Indication: PRODUCT USED FOR UNKNOWN INDICATION
     Dosage: UNK
     Route: 065
  3. AMLODIPINE [Concomitant]
     Indication: PRODUCT USED FOR UNKNOWN INDICATION
     Dosage: UNK
     Route: 065
  4. PAROXETINE [Concomitant]
     Indication: PRODUCT USED FOR UNKNOWN INDICATION
     Dosage: UNK
     Route: 065
  5. TARCEVA [Suspect]
     Indication: LUNG NEOPLASM MALIGNANT
     Dosage: UNK
     Route: 048
     Dates: start: 20110408, end: 20110913

REACTIONS (1)
  - HERPES ZOSTER OPHTHALMIC [None]
